FAERS Safety Report 4297309-1 (Version None)
Quarter: 2004Q1

REPORT INFORMATION
  Report Type: 
  Country: None (occurrence: None)
  Receive Date: 20040212
  Receipt Date: 20030428
  Transmission Date: 20041129
  Serious: Yes (Other)
  Sender: FDA-Public Use
  Company Number: A03200300895

PATIENT
  Age: 31 Year
  Sex: Male

DRUGS (2)
  1. AMBIEN [Suspect]
     Indication: INSOMNIA
     Dosage: 10 MG HS - ORAL
     Route: 048
     Dates: start: 20030101, end: 20030401
  2. AMITRIPTYLINE HCL [Concomitant]

REACTIONS (2)
  - AMNESIA [None]
  - SLEEP WALKING [None]
